FAERS Safety Report 6569419-7 (Version None)
Quarter: 2010Q1

REPORT INFORMATION
  Report Type: 
  Country: None (occurrence: None)
  Receive Date: 20100202
  Receipt Date: 20100202
  Transmission Date: 20100710
  Serious: Yes (Other)
  Sender: FDA-Public Use
  Company Number: None

PATIENT
  Age: 63 Year
  Sex: Female
  Weight: 72.5755 kg

DRUGS (1)
  1. CLINDAMYCIN HCL [Suspect]
     Indication: TOOTH INFECTION
     Dosage: 300MG BID MOUTH
     Route: 048
     Dates: start: 20091212

REACTIONS (6)
  - DIZZINESS [None]
  - DYSPEPSIA [None]
  - LIP SWELLING [None]
  - ORAL PAIN [None]
  - PHARYNGEAL OEDEMA [None]
  - TINNITUS [None]
